FAERS Safety Report 17245528 (Version 1)
Quarter: 2020Q1

REPORT INFORMATION
  Report Type: Spontaneous
  Country: FR (occurrence: FR)
  Receive Date: 20200108
  Receipt Date: 20200108
  Transmission Date: 20200409
  Serious: Yes (Death, Hospitalization)
  Sender: FDA-Public Use
  Company Number: FR-TEVA-2020-FR-1164445

PATIENT
  Age: 55 Year
  Sex: Male
  Weight: 93 kg

DRUGS (11)
  1. PREGABALINE [Suspect]
     Active Substance: PREGABALIN
     Indication: NEURALGIA
     Dosage: 600 MG
     Route: 048
     Dates: start: 2017
  2. BACTRIM [Suspect]
     Active Substance: SULFAMETHOXAZOLE\TRIMETHOPRIM
     Indication: CELLULITIS
     Route: 048
     Dates: start: 20191003, end: 20191104
  3. LEVOFLOXACINE [Suspect]
     Active Substance: LEVOFLOXACIN
     Indication: CELLULITIS
     Dosage: 700 MG
     Route: 048
     Dates: start: 20191024, end: 20191104
  4. METHADONE AP-HP 40 MG, G?LULE [Suspect]
     Active Substance: METHADONE HYDROCHLORIDE
     Indication: CANCER PAIN
     Route: 048
     Dates: start: 201908
  5. MEROPENEM ANHYDRE [Suspect]
     Active Substance: MEROPENEM
     Indication: CELLULITIS
     Dosage: 6 G
     Route: 048
     Dates: start: 20191006, end: 20191104
  6. CLOMIPRAMINE (CHLORHYDRATE DE) [Suspect]
     Active Substance: CLOMIPRAMINE HYDROCHLORIDE
     Indication: NEURALGIA
     Dosage: 75 MG
     Dates: start: 20191025, end: 20191104
  7. YONDELIS [Suspect]
     Active Substance: TRABECTEDIN
     Indication: MALIGNANT FIBROUS HISTIOCYTOMA
     Route: 042
     Dates: start: 201908, end: 201909
  8. ROACTEMRA 162 MG, SOLUTION INJECTABLE EN SERINGUE PR?REMPLIE [Suspect]
     Active Substance: TOCILIZUMAB
     Indication: MALIGNANT FIBROUS HISTIOCYTOMA
     Route: 042
     Dates: start: 201907, end: 201909
  9. CASPOFUNGINE EG [Suspect]
     Active Substance: CASPOFUNGIN ACETATE
     Indication: CELLULITIS
     Dosage: 50 MG
     Route: 042
     Dates: start: 20191024, end: 20191104
  10. RAMIPRIL. [Suspect]
     Active Substance: RAMIPRIL
     Indication: HYPERTENSION
     Route: 048
     Dates: start: 20191024, end: 20191104
  11. DAPTOMYCINE ACCORD [Suspect]
     Active Substance: DAPTOMYCIN
     Indication: CELLULITIS
     Route: 048
     Dates: start: 20191016, end: 20191104

REACTIONS (1)
  - Encephalopathy [Not Recovered/Not Resolved]

NARRATIVE: CASE EVENT DATE: 20191028
